FAERS Safety Report 8958594 (Version 1)
Quarter: 2012Q4

REPORT INFORMATION
  Report Type: Spontaneous
  Country: US (occurrence: None)
  Receive Date: 20121205
  Receipt Date: 20121205
  Transmission Date: 20130627
  Serious: Yes (Disabling)
  Sender: FDA-Public Use
  Company Number: None

PATIENT
  Sex: Female
  Weight: 74.84 kg

DRUGS (3)
  1. PROLIA [Suspect]
     Indication: OSTEOPENIA
     Dates: start: 20110411, end: 20111010
  2. PROLIA [Suspect]
     Indication: OSTEOPENIA
     Dates: start: 20120417
  3. PROLIA [Suspect]
     Indication: OSTEOPENIA
     Dates: start: 20120411, end: 20120417

REACTIONS (2)
  - Cystitis [None]
  - Surgery [None]
